FAERS Safety Report 5773133-5 (Version None)
Quarter: 2008Q2

REPORT INFORMATION
  Report Type: 
  Country: None (occurrence: None)
  Receive Date: 20080615
  Receipt Date: 20080331
  Transmission Date: 20081010
  Serious: No
  Sender: FDA-Public Use
  Company Number: US-BAYER-200811427BCC

PATIENT
  Sex: Female

DRUGS (7)
  1. ALEVE [Suspect]
     Indication: ARTHRALGIA
     Route: 048
  2. BNS VITAL BODY + CELLS [Suspect]
     Indication: DRUG USE FOR UNKNOWN INDICATION
     Route: 048
  3. ASPIRIN [Suspect]
     Indication: DRUG USE FOR UNKNOWN INDICATION
     Route: 048
  4. DIOVAN [Concomitant]
  5. TORSEMIDE [Concomitant]
  6. METOPROLOL [Concomitant]
  7. SPIRIVA [Concomitant]

REACTIONS (1)
  - PARAESTHESIA [None]
